FAERS Safety Report 21310475 (Version 1)
Quarter: 2022Q3

REPORT INFORMATION
  Report Type: Spontaneous
  Country: FR (occurrence: FR)
  Receive Date: 20220909
  Receipt Date: 20220909
  Transmission Date: 20221026
  Serious: Yes (Hospitalization)
  Sender: FDA-Public Use
  Company Number: FR-AFSSAPS-DJ20221532

PATIENT
  Age: 41 Year
  Sex: Male
  Weight: 110 kg

DRUGS (5)
  1. PANTOPRAZOLE [Suspect]
     Active Substance: PANTOPRAZOLE
     Indication: Prophylaxis
     Dosage: 40 MILLIGRAM, DAILY
     Route: 048
     Dates: start: 20220623, end: 20220626
  2. PANTOPRAZOLE [Suspect]
     Active Substance: PANTOPRAZOLE
     Indication: Prophylaxis
     Dosage: 40 MILLIGRAM, DAILY
     Route: 040
     Dates: start: 20220619, end: 20220622
  3. AZACTAM [Suspect]
     Active Substance: AZTREONAM
     Indication: Septic shock
     Dosage: 8 GRAM, DAILY
     Route: 040
     Dates: start: 20220609, end: 20220625
  4. METRONIDAZOLE [Suspect]
     Active Substance: METRONIDAZOLE
     Indication: Septic shock
     Dosage: 1.5 GRAM, DAILY
     Route: 040
     Dates: start: 20220619, end: 20220625
  5. LINEZOLID [Suspect]
     Active Substance: LINEZOLID
     Indication: Septic shock
     Dosage: 1.2 GRAM, DAILY
     Route: 040
     Dates: start: 20220619, end: 20220626

REACTIONS (4)
  - Eosinophilia [Recovering/Resolving]
  - Rash maculo-papular [Recovered/Resolved]
  - Pyrexia [Recovered/Resolved]
  - Arthralgia [Recovered/Resolved]

NARRATIVE: CASE EVENT DATE: 20220629
